FAERS Safety Report 4453800-6 (Version None)
Quarter: 2004Q3

REPORT INFORMATION
  Report Type: 
  Country: None (occurrence: None)
  Receive Date: 20040826
  Receipt Date: 20040505
  Transmission Date: 20050211
  Serious: No
  Sender: FDA-Public Use
  Company Number: WAES 0405USA00261

PATIENT
  Sex: Female

DRUGS (12)
  1. ZETIA [Suspect]
     Indication: BLOOD CHOLESTEROL INCREASED
     Dosage: 10 MG/DAILY/PO
     Route: 048
  2. BEXTRA [Concomitant]
  3. MULTIVITAMIN [Concomitant]
  4. CITRACAL [Concomitant]
  5. IMDUR [Concomitant]
  6. LIPITOR [Concomitant]
  7. NITROSTAT [Concomitant]
  8. PREVACID [Concomitant]
  9. QUESTRAN [Concomitant]
  10. ASPIRIN [Concomitant]
  11. CHONDROITIN SULFATE SODIUM (+) [Concomitant]
  12. METOPROLOL TARTRATE [Concomitant]

REACTIONS (1)
  - DRUG INEFFECTIVE [None]
